FAERS Safety Report 10785166 (Version 3)
Quarter: 2015Q3

REPORT INFORMATION
  Report Type: Spontaneous
  Country: US (occurrence: US)
  Receive Date: 20150211
  Receipt Date: 20150714
  Transmission Date: 20151125
  Serious: Yes (Hospitalization)
  Sender: FDA-Public Use
  Company Number: US-BAYER-2015-020227

PATIENT
  Age: 36 Year
  Sex: Female
  Weight: 126.98 kg

DRUGS (5)
  1. METOPROLOL [Concomitant]
     Active Substance: METOPROLOL
     Indication: HYPERTENSION
     Dosage: UNK
     Dates: start: 201009
  2. METOPROLOL [Concomitant]
     Active Substance: METOPROLOL
     Indication: HYPERTENSION
     Dosage: UNK
  3. ASPIRIN. [Concomitant]
     Active Substance: ASPIRIN
     Dosage: 21 MG, QD
     Dates: start: 20120112
  4. MIRENA [Suspect]
     Active Substance: LEVONORGESTREL
     Indication: CONTRACEPTION
     Dosage: 20 MCG/24HR, CONT
     Route: 015
     Dates: start: 20110628, end: 20120305
  5. LABETALOL [Concomitant]
     Active Substance: LABETALOL\LABETALOL HYDROCHLORIDE
     Dosage: 100 MG, BID
     Dates: start: 20120112

REACTIONS (13)
  - Pelvic pain [None]
  - Abdominal pain lower [None]
  - Depressed mood [None]
  - Genital haemorrhage [None]
  - Medical device discomfort [None]
  - Anxiety [None]
  - Uterine perforation [None]
  - Abdominal pain upper [None]
  - Depression [None]
  - Fear [None]
  - Injury [None]
  - Emotional distress [None]
  - Internal injury [None]

NARRATIVE: CASE EVENT DATE: 2012
